FAERS Safety Report 8444136-7 (Version None)
Quarter: 2012Q2

REPORT INFORMATION
  Report Type: 
  Country: None (occurrence: None)
  Receive Date: 20120611
  Receipt Date: 20120607
  Transmission Date: 20120825
  Serious: Yes (Life-Threatening)
  Sender: FDA-Public Use
  Company Number: ADR-2012-00834

PATIENT
  Sex: Female

DRUGS (2)
  1. BACLOFEN [Suspect]
     Indication: MUSCLE SPASTICITY
  2. BACLOFEN [Suspect]
     Indication: MULTIPLE SCLEROSIS

REACTIONS (4)
  - CONSTIPATION [None]
  - BRADYPHRENIA [None]
  - MEDICAL DEVICE COMPLICATION [None]
  - CARDIAC ARREST [None]
